FAERS Safety Report 24243402 (Version 1)
Quarter: 2024Q3

REPORT INFORMATION
  Report Type: Spontaneous
  Country: US (occurrence: None)
  Receive Date: 20240823
  Receipt Date: 20240823
  Transmission Date: 20241017
  Serious: Yes (Hospitalization)
  Sender: Public
  Company Number: None

PATIENT
  Sex: Female

DRUGS (2)
  1. MYCOPHENOLATE MOFETIL [Suspect]
     Active Substance: MYCOPHENOLATE MOFETIL
     Indication: Renal transplant
     Dosage: 250MG 2 TIMES A DAY BY MOUTH
     Route: 048
     Dates: start: 202404
  2. TACROLIMUS [Concomitant]
     Active Substance: TACROLIMUS
     Dosage: 4MG TWICE DAILY BY MOUTH
     Route: 048
     Dates: start: 202402

REACTIONS (5)
  - Infection [None]
  - Haematological infection [None]
  - Viral infection [None]
  - Pyrexia [None]
  - Chills [None]
